FAERS Safety Report 25267522 (Version 1)
Quarter: 2025Q2

REPORT INFORMATION
  Report Type: Spontaneous
  Country: US (occurrence: US)
  Receive Date: 20250505
  Receipt Date: 20250505
  Transmission Date: 20250716
  Serious: Yes (Life-Threatening, Disabling, Other)
  Sender: CHATTEM
  Company Number: US-OPELLA-2025OHG013115

PATIENT
  Age: 16 Year
  Sex: Male

DRUGS (1)
  1. GOLD BOND ORIGINAL STRENGTH [Suspect]
     Active Substance: MENTHOL
     Indication: Personal hygiene
     Route: 065
     Dates: start: 1962

REACTIONS (2)
  - Pleural mesothelioma [Unknown]
  - Exposure to chemical pollution [Unknown]

NARRATIVE: CASE EVENT DATE: 19620101
